FAERS Safety Report 8414599-1 (Version None)
Quarter: 2012Q2

REPORT INFORMATION
  Report Type: 
  Country: None (occurrence: None)
  Receive Date: 20120605
  Receipt Date: 20120530
  Transmission Date: 20120825
  Serious: Yes (Other)
  Sender: FDA-Public Use
  Company Number: CA-ROCHE-1060017

PATIENT
  Sex: Female
  Weight: 61.2 kg

DRUGS (9)
  1. ASCORBIC ACID [Concomitant]
  2. VITAMIN D [Concomitant]
     Indication: OSTEOPOROSIS
  3. CALCITONIN SALMON [Concomitant]
     Indication: OSTEOPOROSIS
     Dates: start: 20110914, end: 20120222
  4. MABTHERA [Suspect]
     Indication: RHEUMATOID ARTHRITIS
     Dosage: FREQUENCY: 1 PER 2 WEEKS
     Route: 042
     Dates: start: 20110414, end: 20120228
  5. CYCLOSPORINE [Concomitant]
     Indication: DERMATOMYOSITIS
     Route: 048
  6. VITAMIN TAB [Concomitant]
  7. PREDNISONE TAB [Suspect]
     Indication: DERMATOMYOSITIS
     Route: 048
     Dates: start: 20020101
  8. METHOTREXATE [Concomitant]
  9. ACTONEL [Concomitant]
     Indication: OSTEOPOROSIS
     Route: 048

REACTIONS (3)
  - INTERVERTEBRAL DISC COMPRESSION [None]
  - OSTEOPOROSIS [None]
  - INTERVERTEBRAL DISC DISORDER [None]
